FAERS Safety Report 4766054-8 (Version None)
Quarter: 2005Q3

REPORT INFORMATION
  Report Type: 
  Country: None (occurrence: None)
  Receive Date: 20050912
  Receipt Date: 20050907
  Transmission Date: 20060218
  Serious: Yes (Death, Disabling)
  Sender: FDA-Public Use
  Company Number: HCM-0117

PATIENT
  Age: 77 Year
  Sex: Male

DRUGS (5)
  1. TOPOTECAN [Suspect]
     Dosage: 1.1MG PER DAY
     Dates: start: 20040303, end: 20040305
  2. ALUMINIUM SILICATE [Concomitant]
     Dosage: 3G PER DAY
     Route: 048
     Dates: start: 20040226, end: 20040303
  3. ALBUMIN TANNATE [Concomitant]
     Route: 048
     Dates: start: 20040226, end: 20040303
  4. LOXOPROFEN SODIUM [Concomitant]
     Dosage: 60MG PER DAY
     Route: 048
     Dates: start: 20040304, end: 20040306
  5. RILMAZAFONE HYDROCHLORIDE [Concomitant]
     Dosage: 2MG PER DAY
     Route: 048
     Dates: start: 20040303, end: 20040331

REACTIONS (3)
  - BLOOD LACTATE DEHYDROGENASE INCREASED [None]
  - BONE MARROW DEPRESSION [None]
  - LUNG NEOPLASM MALIGNANT [None]
